FAERS Safety Report 8769812 (Version 2)
Quarter: 2012Q4

REPORT INFORMATION
  Report Type: 
  Country: CO (occurrence: CO)
  Receive Date: 20120905
  Receipt Date: 20120928
  Transmission Date: 20130627
  Serious: Yes (Death, Hospitalization, Other)
  Sender: FDA-Public Use
  Company Number: CO-MERCK-1209COL000258

PATIENT
  Age: 50 Year
  Sex: Female
  Weight: 64 kg

DRUGS (2)
  1. INTRONA [Suspect]
     Indication: HEPATITIS B
     Dosage: 80 Microgram, qw
     Route: 058
     Dates: start: 20111202, end: 20120127
  2. INTRONA [Suspect]
     Dosage: 80 Microgram, qw
     Route: 058
     Dates: start: 20120630, end: 20120818

REACTIONS (4)
  - Hepatic failure [Fatal]
  - Renal failure acute [Fatal]
  - Asthenia [Unknown]
  - Decreased appetite [Unknown]
